FAERS Safety Report 4766975-6 (Version None)
Quarter: 2005Q3

REPORT INFORMATION
  Report Type: 
  Country: None (occurrence: None)
  Receive Date: 20050908
  Receipt Date: 20050829
  Transmission Date: 20060218
  Serious: Yes (Death, Congenital Anomaly)
  Sender: FDA-Public Use
  Company Number: 2005EU000256

PATIENT
  Sex: Female

DRUGS (2)
  1. PROTOPIC [Suspect]
     Indication: DERMATITIS ATOPIC
     Dosage: 0.10 %, BID, TRANSPLACENTAL
     Route: 064
     Dates: start: 20040801, end: 20041201
  2. DIPROSONE [Concomitant]

REACTIONS (6)
  - ABORTION INDUCED [None]
  - CONGENITAL ANOMALY [None]
  - DRUG EXPOSURE DURING PREGNANCY [None]
  - HYPERTROPHY [None]
  - TRISOMY 13 [None]
  - ULTRASOUND ANTENATAL SCREEN ABNORMAL [None]
